FAERS Safety Report 8261173-6 (Version None)
Quarter: 2012Q2

REPORT INFORMATION
  Report Type: 
  Country: None (occurrence: None)
  Receive Date: 20120405
  Receipt Date: 20120328
  Transmission Date: 20120825
  Serious: Yes (Other)
  Sender: FDA-Public Use
  Company Number: US-US-EMD SERONO, INC.-7121113

PATIENT
  Sex: Female

DRUGS (5)
  1. REBIF [Suspect]
     Indication: MULTIPLE SCLEROSIS
     Route: 058
     Dates: start: 20110321
  2. UNSPECIFIED SLEEPING MEDICATION [Concomitant]
     Indication: PRODUCT USED FOR UNKNOWN INDICATION
  3. STEROIDS [Suspect]
     Indication: MULTIPLE SCLEROSIS RELAPSE
     Route: 042
  4. PREDNISONE TAB [Suspect]
     Indication: MULTIPLE SCLEROSIS RELAPSE
     Route: 048
  5. TRAMADOL HCL [Concomitant]
     Indication: PRODUCT USED FOR UNKNOWN INDICATION

REACTIONS (7)
  - IMPAIRED DRIVING ABILITY [None]
  - FLANK PAIN [None]
  - DEPRESSION [None]
  - DIABETES MELLITUS [None]
  - HYPOAESTHESIA [None]
  - INFLUENZA LIKE ILLNESS [None]
  - GALLBLADDER DISORDER [None]
